FAERS Safety Report 13498702 (Version 2)
Quarter: 2017Q2

REPORT INFORMATION
  Report Type: Spontaneous
  Country: IN (occurrence: IN)
  Receive Date: 20170501
  Receipt Date: 20170510
  Transmission Date: 20170830
  Serious: Yes (Other)
  Sender: FDA-Public Use
  Company Number: IN-CONCORDIA PHARMACEUTICALS INC.-GSH201704-002650

PATIENT
  Age: 48 Year
  Sex: Female

DRUGS (2)
  1. KAYEXALATE [Suspect]
     Active Substance: SODIUM POLYSTYRENE SULFONATE
     Indication: HYPERKALAEMIA
     Route: 054
  2. SORBITOL. [Suspect]
     Active Substance: SORBITOL
     Indication: HYPERKALAEMIA
     Route: 054

REACTIONS (5)
  - Rectal ulcer [Unknown]
  - Biopsy rectum abnormal [Unknown]
  - Colitis [Unknown]
  - Excessive granulation tissue [Unknown]
  - Crystal deposit intestine [Unknown]
